FAERS Safety Report 10080346 (Version 2)
Quarter: 2014Q2

REPORT INFORMATION
  Report Type: Spontaneous
  Country: US (occurrence: US)
  Receive Date: 20140415
  Receipt Date: 20140424
  Transmission Date: 20141212
  Serious: No
  Sender: FDA-Public Use
  Company Number: US-009507513-1404USA007195

PATIENT
  Age: 62 Year
  Sex: Female

DRUGS (4)
  1. SAPHRIS [Suspect]
     Indication: SCHIZOAFFECTIVE DISORDER
     Dosage: UNK
     Route: 060
     Dates: end: 201310
  2. SAPHRIS [Suspect]
     Indication: PERSONALITY DISORDER
  3. REMERON [Suspect]
     Indication: PERSONALITY DISORDER
     Dosage: UNK
     Route: 048
     Dates: end: 201310
  4. REMERON [Suspect]
     Indication: SCHIZOAFFECTIVE DISORDER

REACTIONS (3)
  - Oral discomfort [Unknown]
  - Hypoaesthesia oral [Unknown]
  - Off label use [Unknown]
